FAERS Safety Report 7700614-7 (Version None)
Quarter: 2011Q3

REPORT INFORMATION
  Report Type: 
  Country: None (occurrence: None)
  Receive Date: 20110822
  Receipt Date: 20110822
  Transmission Date: 20111222
  Serious: Yes (Hospitalization)
  Sender: FDA-Public Use
  Company Number: None

PATIENT
  Age: 61 Year
  Sex: Female
  Weight: 63.502 kg

DRUGS (1)
  1. FENOFIBRATE [Suspect]
     Dosage: 1
     Dates: start: 20110813, end: 20110818

REACTIONS (6)
  - BACK PAIN [None]
  - NAUSEA [None]
  - DYSPNOEA [None]
  - DIZZINESS [None]
  - MUSCULOSKELETAL PAIN [None]
  - ASTHENIA [None]
